FAERS Safety Report 9449739 (Version 2)
Quarter: 2013Q3

REPORT INFORMATION
  Report Type: Report from Study
  Country: JP (occurrence: JP)
  Receive Date: 20130809
  Receipt Date: 20130927
  Transmission Date: 20140515
  Serious: Yes (Hospitalization)
  Sender: FDA-Public Use
  Company Number: JP-JNJFOC-20130801267

PATIENT
  Age: 73 Year
  Sex: Female
  Weight: 48 kg

DRUGS (11)
  1. SIMPONI [Suspect]
     Indication: RHEUMATOID ARTHRITIS
     Route: 058
     Dates: start: 20130207, end: 20130207
  2. SIMPONI [Suspect]
     Indication: RHEUMATOID ARTHRITIS
     Route: 058
     Dates: start: 20121227, end: 20121227
  3. SIMPONI [Suspect]
     Indication: RHEUMATOID ARTHRITIS
     Route: 058
     Dates: start: 20121126, end: 20121126
  4. METHOTREXATE [Concomitant]
     Indication: RHEUMATOID ARTHRITIS
  5. LOXONIN [Concomitant]
     Indication: RHEUMATOID ARTHRITIS
  6. CALBLOCK [Concomitant]
     Indication: HYPERTENSION
     Route: 048
  7. MICARDIS [Concomitant]
     Indication: HYPERTENSION
     Route: 048
  8. RASILEZ [Concomitant]
     Indication: HYPERTENSION
     Route: 048
  9. PARIET [Concomitant]
     Indication: GASTROOESOPHAGEAL REFLUX DISEASE
     Route: 048
  10. NEUROTROPIN [Concomitant]
     Indication: RHEUMATOID ARTHRITIS
     Route: 065
  11. FOLIAMIN [Concomitant]
     Indication: PROPHYLAXIS
     Route: 065

REACTIONS (1)
  - Enterocolitis [Recovered/Resolved]
